FAERS Safety Report 14369474 (Version 1)
Quarter: 2018Q1

REPORT INFORMATION
  Report Type: Spontaneous
  Country: US (occurrence: US)
  Receive Date: 20180110
  Receipt Date: 20180110
  Transmission Date: 20180509
  Serious: No
  Sender: FDA-Public Use
  Company Number: US-DRREDDYS-USA/USA/17/0091499

PATIENT
  Age: 63 Year
  Sex: Male

DRUGS (2)
  1. NICOTINE. [Suspect]
     Active Substance: NICOTINE
     Indication: SMOKING CESSATION THERAPY
     Route: 062
     Dates: start: 201705
  2. NICOTINE. [Suspect]
     Active Substance: NICOTINE
     Route: 062
     Dates: start: 201705

REACTIONS (6)
  - Abnormal dreams [Not Recovered/Not Resolved]
  - Drug dose omission [Unknown]
  - Product adhesion issue [Unknown]
  - Irritability [Not Recovered/Not Resolved]
  - Weight increased [Not Recovered/Not Resolved]
  - Incorrect drug administration duration [Unknown]
